FAERS Safety Report 18479109 (Version 1)
Quarter: 2020Q4

REPORT INFORMATION
  Report Type: Spontaneous
  Country: NL (occurrence: NL)
  Receive Date: 20201109
  Receipt Date: 20201109
  Transmission Date: 20210114
  Serious: Yes (Other)
  Sender: FDA-Public Use
  Company Number: NL-SUN PHARMACEUTICAL INDUSTRIES LTD-2020R1-266985

PATIENT
  Age: 37 Year
  Sex: Male

DRUGS (1)
  1. ZOLPIDEM [Suspect]
     Active Substance: ZOLPIDEM TARTRATE
     Indication: HYPOTONIC-HYPORESPONSIVE EPISODE
     Dosage: 10 MILLIGRAM
     Route: 065

REACTIONS (1)
  - Abulia [Unknown]
